FAERS Safety Report 6553679-2 (Version None)
Quarter: 2010Q1

REPORT INFORMATION
  Report Type: 
  Country: None (occurrence: None)
  Receive Date: 20100125
  Receipt Date: 20100125
  Transmission Date: 20100710
  Serious: Yes (Other)
  Sender: FDA-Public Use
  Company Number: None

PATIENT
  Age: 74 Year
  Sex: Male
  Weight: 77.1115 kg

DRUGS (3)
  1. PLAVIX [Suspect]
     Dosage: 20 MG 1 PER DAY
  2. PROPEL [Suspect]
     Dosage: 20 MG 1 PER DAY
  3. LIPITOR [Suspect]

REACTIONS (2)
  - ARTHRALGIA [None]
  - PRODUCT QUALITY ISSUE [None]
